FAERS Safety Report 10971580 (Version 1)
Quarter: 2015Q1

REPORT INFORMATION
  Report Type: Spontaneous
  Country: US (occurrence: None)
  Receive Date: 20150330
  Receipt Date: 20150330
  Transmission Date: 20150721
  Serious: Yes (Disabling)
  Sender: FDA-Public Use
  Company Number: None

PATIENT
  Age: 66 Year
  Sex: Female
  Weight: 88.45 kg

DRUGS (3)
  1. PLAQUENIL [Suspect]
     Active Substance: HYDROXYCHLOROQUINE SULFATE
     Indication: PALINDROMIC RHEUMATISM
     Dosage: 2/DAY
     Route: 048
     Dates: start: 20141021, end: 20141113
  2. PROBIOTIC [Concomitant]
     Active Substance: PROBIOTICS NOS
  3. SYNTHROID [Concomitant]
     Active Substance: LEVOTHYROXINE SODIUM

REACTIONS (7)
  - Pruritus generalised [None]
  - Genital discomfort [None]
  - Pruritus genital [None]
  - Anal pruritus [None]
  - Rash [None]
  - Anorectal discomfort [None]
  - Urticaria [None]

NARRATIVE: CASE EVENT DATE: 20141014
